FAERS Safety Report 6633973-7 (Version None)
Quarter: 2010Q1

REPORT INFORMATION
  Report Type: 
  Country: None (occurrence: None)
  Receive Date: 20100315
  Receipt Date: 20100310
  Transmission Date: 20100710
  Serious: Yes (Death)
  Sender: FDA-Public Use
  Company Number: GB-ORACLE-2010S1000113

PATIENT
  Age: 81 Year
  Sex: Female

DRUGS (2)
  1. CUBICIN [Suspect]
     Indication: SOFT TISSUE INFECTION
  2. CUBICIN [Suspect]

REACTIONS (1)
  - PATHOGEN RESISTANCE [None]
